FAERS Safety Report 8595791-2 (Version None)
Quarter: 2012Q3

REPORT INFORMATION
  Report Type: 
  Country: None (occurrence: None)
  Receive Date: 20120815
  Receipt Date: 20120806
  Transmission Date: 20120928
  Serious: Yes (Other)
  Sender: FDA-Public Use
  Company Number: US-ASTRAZENECA-2008UW27974

PATIENT
  Age: 51 Year
  Sex: Female
  Weight: 47.2 kg

DRUGS (12)
  1. NEXIUM [Suspect]
     Route: 048
     Dates: start: 20080608, end: 20081021
  2. PROTONIX [Concomitant]
     Dates: start: 20070904, end: 20071205
  3. NICORETTE [Concomitant]
     Dosage: 2 MG GUM CHEW ONE PIECE GUM Q 2 HRS
     Dates: start: 20120111
  4. OMEPRAZOLE [Suspect]
     Route: 048
     Dates: start: 20090414, end: 20100108
  5. ACIPHEX [Concomitant]
     Dates: start: 20070710, end: 20070803
  6. NEXIUM [Suspect]
     Route: 048
  7. PROTONIX [Concomitant]
     Dates: start: 20070525, end: 20070803
  8. INDERAL [Concomitant]
     Route: 048
     Dates: start: 20120130
  9. OMEPRAZOLE [Suspect]
     Route: 048
     Dates: start: 20081117, end: 20081210
  10. NEXIUM [Suspect]
     Route: 048
  11. PRILOSEC OTC [Suspect]
     Route: 048
     Dates: start: 20080608, end: 20081021
  12. ESTRADIOL [Concomitant]
     Route: 048
     Dates: start: 20120210

REACTIONS (48)
  - CEREBROVASCULAR ACCIDENT [None]
  - DECREASED APPETITE [None]
  - RAYNAUD'S PHENOMENON [None]
  - ASTHMA [None]
  - MIGRAINE [None]
  - HEADACHE [None]
  - STRESS [None]
  - SLEEP DISORDER [None]
  - DEPRESSION [None]
  - TONGUE BITING [None]
  - ANXIETY [None]
  - MUSCULOSKELETAL CHEST PAIN [None]
  - VITAMIN D DEFICIENCY [None]
  - ROTATOR CUFF SYNDROME [None]
  - SINUS TACHYCARDIA [None]
  - ASTHENIA [None]
  - CARDIAC DISORDER [None]
  - PHOTOPHOBIA [None]
  - DYSKINESIA [None]
  - FOOT FRACTURE [None]
  - OSTEOPOROSIS [None]
  - DRY EYE [None]
  - INSOMNIA [None]
  - MALAISE [None]
  - NAUSEA [None]
  - DRUG INEFFECTIVE [None]
  - CHEST PAIN [None]
  - MICTURITION URGENCY [None]
  - DISTURBANCE IN ATTENTION [None]
  - SLOW SPEECH [None]
  - SELF ESTEEM DECREASED [None]
  - PYREXIA [None]
  - ABDOMINAL PAIN [None]
  - ULCER [None]
  - DRUG DOSE OMISSION [None]
  - DYSURIA [None]
  - DYSPNOEA [None]
  - PAIN IN EXTREMITY [None]
  - DIARRHOEA [None]
  - ADVERSE EVENT [None]
  - PAIN [None]
  - PALPITATIONS [None]
  - HYPERTENSION [None]
  - ROAD TRAFFIC ACCIDENT [None]
  - GASTRIC HAEMORRHAGE [None]
  - GENITAL HERPES [None]
  - EYE SWELLING [None]
  - OFF LABEL USE [None]
